FAERS Safety Report 5852543-1 (Version None)
Quarter: 2008Q3

REPORT INFORMATION
  Report Type: 
  Country: None (occurrence: None)
  Receive Date: 20080820
  Receipt Date: 20080820
  Transmission Date: 20090109
  Serious: Yes (Life-Threatening)
  Sender: FDA-Public Use
  Company Number: None

PATIENT
  Age: 37 Year
  Sex: Female

DRUGS (1)
  1. AVELOX [Suspect]
     Indication: BRONCHITIS
     Dosage: 400 MG. DAILY PO
     Route: 048
     Dates: start: 20071117, end: 20071126

REACTIONS (5)
  - COLD SWEAT [None]
  - DIARRHOEA [None]
  - NAUSEA [None]
  - PRURITUS GENERALISED [None]
  - RASH [None]
